FAERS Safety Report 4734901-1 (Version None)
Quarter: 2005Q3

REPORT INFORMATION
  Report Type: 
  Country: None (occurrence: None)
  Receive Date: 20050721
  Receipt Date: 20050426
  Transmission Date: 20060218
  Serious: No
  Sender: FDA-Public Use
  Company Number: 2005SP000378

PATIENT
  Age: 66 Year
  Sex: Female
  Weight: 67.1324 kg

DRUGS (3)
  1. LUNESTA [Suspect]
     Dosage: 1 MG
     Dates: start: 20050425
  2. ESTRADIOL [Concomitant]
  3. LIPITOR [Concomitant]

REACTIONS (3)
  - DYSGEUSIA [None]
  - PARADOXICAL DRUG REACTION [None]
  - SOMNOLENCE [None]
